FAERS Safety Report 5214155-2 (Version None)
Quarter: 2007Q1

REPORT INFORMATION
  Report Type: 
  Country: None (occurrence: None)
  Receive Date: 20070122
  Receipt Date: 20070110
  Transmission Date: 20070707
  Serious: Yes (Death)
  Sender: FDA-Public Use
  Company Number: LB-BRISTOL-MYERS SQUIBB COMPANY-13639224

PATIENT
  Age: 67 Year
  Sex: Male
  Weight: 72 kg

DRUGS (6)
  1. COAPROVEL [Suspect]
     Indication: HYPERTENSION
     Route: 048
     Dates: start: 20060501, end: 20060714
  2. SINTROM [Concomitant]
     Indication: ARTERIAL DISORDER
     Route: 048
  3. AMARYL [Concomitant]
     Indication: DIABETES MELLITUS
     Route: 048
  4. TRENTAL [Concomitant]
     Indication: ARTERIAL DISORDER
     Route: 048
  5. FONZYLANE [Concomitant]
     Indication: ARTERIAL DISORDER
     Route: 048
  6. ASPIRIN [Concomitant]
     Indication: ARTERIAL DISORDER
     Route: 048

REACTIONS (3)
  - DECUBITUS ULCER [None]
  - MULTI-ORGAN FAILURE [None]
  - SEPSIS [None]
